FAERS Safety Report 7734854-8 (Version None)
Quarter: 2011Q3

REPORT INFORMATION
  Report Type: 
  Country: None (occurrence: None)
  Receive Date: 20110907
  Receipt Date: 20110824
  Transmission Date: 20111222
  Serious: Yes (Other)
  Sender: FDA-Public Use
  Company Number: PHHY2010TW40543

PATIENT
  Sex: Female

DRUGS (3)
  1. TASIGNA [Suspect]
     Indication: CHRONIC MYELOID LEUKAEMIA
     Dosage: 800 MG, DAILY
     Route: 048
     Dates: start: 20100304
  2. TASIGNA [Suspect]
     Route: 048
  3. SPRYCEL [Suspect]

REACTIONS (13)
  - DIZZINESS [None]
  - HYPERTHYROIDISM [None]
  - ABDOMINAL PAIN [None]
  - DYSPNOEA [None]
  - DEPRESSION [None]
  - DIARRHOEA [None]
  - PLEURAL EFFUSION [None]
  - PYREXIA [None]
  - PRURITUS [None]
  - ARRHYTHMIA [None]
  - TACHYCARDIA [None]
  - GASTROENTERITIS [None]
  - NASOPHARYNGITIS [None]
